FAERS Safety Report 18479093 (Version 3)
Quarter: 2020Q4

REPORT INFORMATION
  Report Type: Report from Study
  Country: US (occurrence: US)
  Receive Date: 20201109
  Receipt Date: 20201130
  Transmission Date: 20210114
  Serious: No
  Sender: FDA-Public Use
  Company Number: US-UCBSA-2020043601

PATIENT
  Sex: Male
  Weight: 127 kg

DRUGS (2)
  1. BRIVIACT [Suspect]
     Active Substance: BRIVARACETAM
     Indication: EPILEPSY
     Dosage: ONE AND HALF TABLET OF 100MG, 2X/DAY (BID)
     Route: 048
     Dates: start: 2019
  2. LACOSAMIDE. [Suspect]
     Active Substance: LACOSAMIDE
     Indication: EPILEPSY
     Dosage: 300MG MORNING AND 450MG AT NIGHT, 2X/DAY (BID)
     Route: 048
     Dates: start: 2019

REACTIONS (2)
  - Wrong technique in product usage process [Unknown]
  - Overdose [Unknown]

NARRATIVE: CASE EVENT DATE: 2019
